FAERS Safety Report 13280424 (Version 1)
Quarter: 2017Q1

REPORT INFORMATION
  Report Type: Spontaneous
  Country: US (occurrence: US)
  Receive Date: 20170228
  Receipt Date: 20170228
  Transmission Date: 20170428
  Serious: Yes (Other)
  Sender: FDA-Public Use
  Company Number: None

PATIENT
  Age: 10 Year
  Sex: Female
  Weight: 29.25 kg

DRUGS (3)
  1. MELATONIN [Concomitant]
     Active Substance: MELATONIN
  2. EQUATE CLEAR LAX [Suspect]
     Active Substance: POLYETHYLENE GLYCOL 3350
     Indication: CONSTIPATION
     Dates: start: 20170214, end: 20170221
  3. CHILDRENS IBUPROFEN [Concomitant]
     Active Substance: IBUPROFEN

REACTIONS (6)
  - Hyperventilation [None]
  - Hallucination, visual [None]
  - Hyperhidrosis [None]
  - Panic attack [None]
  - Mydriasis [None]
  - Tremor [None]

NARRATIVE: CASE EVENT DATE: 20170221
